FAERS Safety Report 8767595 (Version 1)
Quarter: 2012Q4

REPORT INFORMATION
  Report Type: 
  Country: US (occurrence: US)
  Receive Date: 20120904
  Receipt Date: 20120904
  Transmission Date: 20130627
  Serious: No
  Sender: FDA-Public Use
  Company Number: US-BAYER-2012-087174

PATIENT
  Age: 17 Year
  Sex: Female

DRUGS (2)
  1. NATAZIA [Suspect]
     Indication: MENORRHAGIA
     Dosage: UNK
     Dates: start: 20120813
  2. YAZ [Concomitant]
     Indication: MENORRHAGIA

REACTIONS (1)
  - Menorrhagia [Not Recovered/Not Resolved]
